FAERS Safety Report 16913702 (Version 1)
Quarter: 2019Q4

REPORT INFORMATION
  Report Type: Spontaneous
  Country: US (occurrence: US)
  Receive Date: 20191014
  Receipt Date: 20191014
  Transmission Date: 20200122
  Serious: Yes (Hospitalization, Other)
  Sender: FDA-Public Use
  Company Number: US-NOVOPROD-689261

PATIENT
  Sex: Male

DRUGS (1)
  1. NOVOLOG [Suspect]
     Active Substance: INSULIN ASPART
     Indication: TYPE 2 DIABETES MELLITUS
     Dosage: 16 IU, TID (16 UNITS TID BEFORE MEALS PLUS A SLIDING SCALE)
     Route: 058

REACTIONS (4)
  - Poor peripheral circulation [Unknown]
  - Skin ulcer [Unknown]
  - Dry gangrene [Unknown]
  - Skin ulcer [Unknown]

NARRATIVE: CASE EVENT DATE: 201901
